FAERS Safety Report 4774855-5 (Version None)
Quarter: 2005Q3

REPORT INFORMATION
  Report Type: 
  Country: None (occurrence: None)
  Receive Date: 20050919
  Receipt Date: 20050911
  Transmission Date: 20060218
  Serious: Yes (Death, Hospitalization)
  Sender: FDA-Public Use
  Company Number: 2005126263

PATIENT
  Age: 30 Year
  Sex: Male

DRUGS (3)
  1. ZOLOFT [Suspect]
     Indication: BIPOLAR I DISORDER
     Dosage: 100 MG (50 MG, 2 IN 1 D), ORAL
     Route: 048
     Dates: start: 20050101, end: 20050801
  2. CHLORPROMAZINE HCL [Concomitant]
  3. TEGRETOL [Concomitant]

REACTIONS (3)
  - BIPOLAR I DISORDER [None]
  - COMPLETED SUICIDE [None]
  - CONDITION AGGRAVATED [None]
